FAERS Safety Report 8540090-8 (Version None)
Quarter: 2012Q3

REPORT INFORMATION
  Report Type: 
  Country: None (occurrence: None)
  Receive Date: 20120726
  Receipt Date: 20120717
  Transmission Date: 20120928
  Serious: Yes (Other)
  Sender: FDA-Public Use
  Company Number: JP-VERTEX PHARMACEUTICALS INC.-AE-2012-003525

PATIENT
  Age: 53 Year
  Sex: Male

DRUGS (8)
  1. LOXONIN [Concomitant]
     Route: 048
     Dates: start: 20120109
  2. TELAVIC (TELAPREVIR) [Suspect]
     Indication: HEPATITIS C
     Route: 048
     Dates: start: 20120106
  3. EPADEL S [Concomitant]
     Route: 048
     Dates: start: 20120106
  4. REBETOL [Concomitant]
     Route: 048
     Dates: start: 20120121
  5. EPADEL S [Concomitant]
     Route: 048
  6. PEGINTERFERON ALFA-2B [Concomitant]
     Indication: HEPATITIS C
     Route: 051
     Dates: start: 20120106
  7. AMOBAN [Concomitant]
     Route: 048
     Dates: start: 20120113
  8. REBETOL [Concomitant]
     Indication: HEPATITIS C
     Route: 048
     Dates: start: 20120106, end: 20120120

REACTIONS (1)
  - WHITE BLOOD CELL COUNT DECREASED [None]
